FAERS Safety Report 11807970 (Version 2)
Quarter: 2015Q4

REPORT INFORMATION
  Report Type: Spontaneous
  Country: US (occurrence: US)
  Receive Date: 20151207
  Receipt Date: 20151221
  Transmission Date: 20160305
  Serious: Yes (Hospitalization, Other)
  Sender: FDA-Public Use
  Company Number: US-PFIZER INC-2015412534

PATIENT
  Age: 53 Year
  Sex: Male

DRUGS (1)
  1. LYRICA [Suspect]
     Active Substance: PREGABALIN
     Indication: POLYNEUROPATHY
     Dosage: 225 MG, 3X/DAY, (75 MG 3 CAPSULES 3 TIMES A DAY)
     Dates: start: 2012

REACTIONS (4)
  - Drug dispensing error [Unknown]
  - Pain in extremity [Not Recovered/Not Resolved]
  - Overdose [Unknown]
  - Dysstasia [Unknown]

NARRATIVE: CASE EVENT DATE: 201511
